FAERS Safety Report 10560514 (Version 2)
Quarter: 2018Q3

REPORT INFORMATION
  Report Type: Report from Study
  Country: US (occurrence: US)
  Receive Date: 20141103
  Receipt Date: 20180802
  Transmission Date: 20181010
  Serious: No
  Sender: FDA-Public Use
  Company Number: US-SA-2014SA032564

PATIENT
  Age: 54 Year
  Sex: Male

DRUGS (4)
  1. ALGLUCOSIDASE ALFA [Suspect]
     Active Substance: ALGLUCOSIDASE ALFA
     Dosage: 1650, Q2
     Route: 041
     Dates: start: 20170803
  2. BENADRYL [Concomitant]
     Active Substance: DIPHENHYDRAMINE HYDROCHLORIDE
     Indication: PREMEDICATION
     Dosage: UNK UNK,UNK
  3. ALGLUCOSIDASE ALFA [Suspect]
     Active Substance: ALGLUCOSIDASE ALFA
     Indication: GLYCOGEN STORAGE DISEASE TYPE II
     Dosage: UNK
     Route: 041
     Dates: start: 201311
  4. CORTICOSTEROID NOS [Concomitant]
     Active Substance: CORTICOSTEROID NOS
     Indication: PREMEDICATION
     Dosage: UNK UNK,UNK

REACTIONS (4)
  - Disease progression [Not Recovered/Not Resolved]
  - Dyspnoea [Not Recovered/Not Resolved]
  - Dysstasia [Not Recovered/Not Resolved]
  - Rash [Unknown]

NARRATIVE: CASE EVENT DATE: 201312
